FAERS Safety Report 6043095-4 (Version None)
Quarter: 2009Q1

REPORT INFORMATION
  Report Type: 
  Country: None (occurrence: None)
  Receive Date: 20090119
  Receipt Date: 20090108
  Transmission Date: 20090719
  Serious: Yes (Other)
  Sender: FDA-Public Use
  Company Number: GR-ROCHE-607563

PATIENT
  Age: 67 Year
  Sex: Female

DRUGS (3)
  1. INTERFERON ALFA [Suspect]
     Route: 065
  2. EPIRUBICIN [Suspect]
     Route: 065
  3. MITOXANTRONE [Suspect]
     Route: 065

REACTIONS (1)
  - NEPHROTIC SYNDROME [None]
